FAERS Safety Report 5309876-7 (Version None)
Quarter: 2007Q1

REPORT INFORMATION
  Report Type: 
  Country: None (occurrence: None)
  Receive Date: 20070201
  Receipt Date: 20060202
  Transmission Date: 20070707
  Serious: Yes (Hospitalization)
  Sender: FDA-Public Use
  Company Number: US-2005-027839

PATIENT
  Age: 33 Year
  Sex: Female
  Weight: 44.9 kg

DRUGS (5)
  1. MIRENA [Suspect]
     Indication: CONTRACEPTION
     Dosage: SEE IMAGE
     Route: 015
     Dates: start: 20050922, end: 20050922
  2. MIRENA [Suspect]
     Dates: start: 20050922, end: 20051002
  3. TRAMADOL HCL [Concomitant]
  4. ALDARA [Concomitant]
  5. MULTIVITAMINS (RETINOL, PANTHENOL) [Concomitant]

REACTIONS (3)
  - IUD MIGRATION [None]
  - PHARMACEUTICAL PRODUCT COMPLAINT [None]
  - PROCEDURAL PAIN [None]
